FAERS Safety Report 6795718-X (Version None)
Quarter: 2010Q2

REPORT INFORMATION
  Report Type: 
  Country: None (occurrence: None)
  Receive Date: 20100625
  Receipt Date: 20100614
  Transmission Date: 20101027
  Serious: Yes (Hospitalization)
  Sender: FDA-Public Use
  Company Number: US-ELI_LILLY_AND_COMPANY-US201006004008

PATIENT
  Sex: Female

DRUGS (6)
  1. CYMBALTA [Suspect]
     Indication: FIBROMYALGIA
     Dosage: 1 D/F, UNK
  2. CYMBALTA [Suspect]
     Dosage: 60 MG, DAILY (1/D)
  3. CELEBREX [Concomitant]
  4. SYNTHROID [Concomitant]
  5. PROTONIX [Concomitant]
  6. TRAMADOL HCL [Concomitant]

REACTIONS (4)
  - ADVERSE EVENT [None]
  - MYOCARDIAL INFARCTION [None]
  - SOMNOLENCE [None]
  - THROMBOSIS [None]
